FAERS Safety Report 7869981-8 (Version None)
Quarter: 2011Q4

REPORT INFORMATION
  Report Type: 
  Country: None (occurrence: None)
  Receive Date: 20111027
  Receipt Date: 20111014
  Transmission Date: 20120403
  Serious: Yes (Hospitalization)
  Sender: FDA-Public Use
  Company Number: 1072525

PATIENT
  Age: 70 Year
  Sex: Male
  Weight: 67.9 kg

DRUGS (4)
  1. CAMPATH [Suspect]
     Indication: CHRONIC LYMPHOCYTIC LEUKAEMIA
     Dosage: 30 MG, TIW X 18 WEEKS, SUBCUTANEOUS
     Route: 058
     Dates: start: 20110729, end: 20110914
  2. NIPENT [Suspect]
     Indication: CHRONIC LYMPHOCYTIC LEUKAEMIA
     Dosage: 8 MG
     Dates: start: 20101227, end: 20110518
  3. (RITUXIMAB) [Suspect]
     Indication: CHRONIC LYMPHOCYTIC LEUKAEMIA
     Dosage: 758 MG, NOT REPORTED
     Dates: start: 20101227, end: 20110518
  4. CYCLOPHOSPHAMIDE [Suspect]
     Indication: CHRONIC LYMPHOCYTIC LEUKAEMIA
     Dosage: 1212 MG
     Dates: start: 20101227, end: 20110518

REACTIONS (13)
  - PARAESTHESIA [None]
  - PLATELET COUNT DECREASED [None]
  - IMMOBILE [None]
  - FALL [None]
  - FATIGUE [None]
  - DEHYDRATION [None]
  - BLOOD PRESSURE DECREASED [None]
  - ANAEMIA [None]
  - HYPOAESTHESIA [None]
  - INFESTATION [None]
  - CYTOMEGALOVIRUS INFECTION [None]
  - DYSPNOEA [None]
  - MUSCULAR WEAKNESS [None]
